FAERS Safety Report 19894836 (Version 1)
Quarter: 2021Q3

REPORT INFORMATION
  Report Type: Other
  Country: GB (occurrence: GB)
  Receive Date: 20210929
  Receipt Date: 20210929
  Transmission Date: 20211014
  Serious: Yes (Disabling, Other)
  Sender: FDA-Public Use
  Company Number: GB-GLENMARK PHARMACEUTICALS-2021GMK068024

PATIENT

DRUGS (3)
  1. EUMOVATE [Suspect]
     Active Substance: CLOBETASONE BUTYRATE
     Indication: ECZEMA
     Dosage: UNK, BID (APPLIED TWICE PER DAY TO NECK, CHEST AND ARMS)
     Route: 061
     Dates: start: 20210118, end: 20210205
  2. HYDROCORTISON [HYDROCORTISONE] [Suspect]
     Active Substance: HYDROCORTISONE
     Indication: ECZEMA
     Dosage: UNK, BID (APPLIED TWICE PER DAY TO FACE AND EYELIDS)
     Route: 061
     Dates: start: 20210118, end: 20210204
  3. MOMETASONE FUROATE. [Suspect]
     Active Substance: MOMETASONE FUROATE
     Indication: ECZEMA
     Dosage: UNK (TOOK FOR 5 DAYS INITIALLY AND THEN ATTEMPTED TO WEAN OFF BY REDUCING DOSAGE UNTIL STOP 9TH OF A
     Route: 061
     Dates: start: 20210211, end: 20210409

REACTIONS (14)
  - Insomnia [Not Recovered/Not Resolved]
  - Oedema [Not Recovered/Not Resolved]
  - Skin fissures [Not Recovered/Not Resolved]
  - Body temperature abnormal [Not Recovered/Not Resolved]
  - Rash [Not Recovered/Not Resolved]
  - Drug ineffective [Unknown]
  - Withdrawal syndrome [Not Recovered/Not Resolved]
  - Depression [Not Recovered/Not Resolved]
  - Adverse drug reaction [Not Recovered/Not Resolved]
  - Skin weeping [Not Recovered/Not Resolved]
  - Skin exfoliation [Not Recovered/Not Resolved]
  - Product use issue [Unknown]
  - Erythema [Not Recovered/Not Resolved]
  - Eczema [Not Recovered/Not Resolved]

NARRATIVE: CASE EVENT DATE: 20210409
